FAERS Safety Report 12058376 (Version 3)
Quarter: 2016Q2

REPORT INFORMATION
  Report Type: Spontaneous
  Country: DE (occurrence: DE)
  Receive Date: 20160210
  Receipt Date: 20160614
  Transmission Date: 20160815
  Serious: Yes (Other)
  Sender: FDA-Public Use
  Company Number: DE-ROCHE-1708187

PATIENT
  Sex: Female

DRUGS (10)
  1. ESOMEPRAZOL [Concomitant]
     Active Substance: ESOMEPRAZOLE
  2. CYCLOPHOSPHAMIDE. [Concomitant]
     Active Substance: CYCLOPHOSPHAMIDE
     Indication: MANTLE CELL LYMPHOMA
     Dosage: ACCORDING TO R-CHOP REGIMEN, 6 CYCLES
     Route: 065
     Dates: start: 2007
  3. PREDNISOLON [Concomitant]
     Active Substance: PREDNISOLONE
     Indication: MANTLE CELL LYMPHOMA
     Dosage: ACCORDING TO R-CHOP REGIMEN, 6 CYCLES
     Route: 065
     Dates: start: 2007
  4. MABTHERA [Suspect]
     Active Substance: RITUXIMAB
     Indication: MANTLE CELL LYMPHOMA
     Route: 065
     Dates: start: 2003
  5. MABTHERA [Suspect]
     Active Substance: RITUXIMAB
     Route: 065
  6. MABTHERA [Suspect]
     Active Substance: RITUXIMAB
     Dosage: MAINTENANCE THERAPY, FOR OVER 2 YEARS
     Route: 065
  7. VINCRISTIN [Concomitant]
     Active Substance: VINCRISTINE
     Indication: MANTLE CELL LYMPHOMA
     Dosage: ACCORDING TO R-CHOP REGIMEN, 6 CYCLES
     Route: 065
     Dates: start: 2007
  8. MABTHERA [Suspect]
     Active Substance: RITUXIMAB
     Dosage: ACCORDING TO R-CHOP REGIMEN, 6 CYCLES
     Route: 065
     Dates: start: 2007
  9. DOXORUBICIN [Concomitant]
     Active Substance: DOXORUBICIN
     Indication: MANTLE CELL LYMPHOMA
     Dosage: ACCORDING TO R-CHOP REGIMEN, 6 CYCLES
     Route: 065
     Dates: start: 2007
  10. PANTOPRAZOL [Concomitant]
     Active Substance: PANTOPRAZOLE SODIUM

REACTIONS (4)
  - Nasopharyngitis [Not Recovered/Not Resolved]
  - Immunodeficiency [Not Recovered/Not Resolved]
  - Gastrooesophageal reflux disease [Unknown]
  - Infection [Unknown]

NARRATIVE: CASE EVENT DATE: 2012
